FAERS Safety Report 12797875 (Version 1)
Quarter: 2016Q3

REPORT INFORMATION
  Report Type: Spontaneous
  Country: US (occurrence: US)
  Receive Date: 20160929
  Receipt Date: 20160929
  Transmission Date: 20161109
  Serious: Yes (Life-Threatening)
  Sender: FDA-Public Use
  Company Number: None

PATIENT
  Age: 30 Year
  Sex: Female
  Weight: 38.25 kg

DRUGS (1)
  1. BUPROPION HCL (XL) PAR PHARMACEUTICALS [Suspect]
     Active Substance: BUPROPION HYDROCHLORIDE
     Indication: DEPRESSION
     Route: 048
     Dates: start: 20160928, end: 20160929

REACTIONS (5)
  - Product substitution issue [None]
  - Depression [None]
  - Economic problem [None]
  - Agitation [None]
  - Abnormal dreams [None]

NARRATIVE: CASE EVENT DATE: 20160928
